FAERS Safety Report 15337687 (Version 1)
Quarter: 2018Q4

REPORT INFORMATION
  Report Type: Spontaneous
  Country: FR (occurrence: FR)
  Receive Date: 20180831
  Receipt Date: 20180831
  Transmission Date: 20190204
  Serious: Yes (Hospitalization)
  Sender: FDA-Public Use
  Company Number: FR-SUN PHARMACEUTICAL INDUSTRIES LTD-2018R1-182782

PATIENT
  Age: 41 Year
  Sex: Male
  Weight: 60 kg

DRUGS (16)
  1. FRAGMINE [Suspect]
     Active Substance: DALTEPARIN SODIUM
     Indication: THROMBOSIS PROPHYLAXIS
     Dosage: 1 DF, DAILY
     Route: 058
     Dates: start: 20180608, end: 20180608
  2. KETOPROFENE MACOPHARMA 100 MG, SOLUTION POUR PERFUSION [Suspect]
     Active Substance: KETOPROFEN
     Indication: ANALGESIC THERAPY
     Dosage: 1 DF, DAILY
     Route: 042
     Dates: start: 20180607, end: 20180608
  3. TRACRIUM [Suspect]
     Active Substance: ATRACURIUM BESYLATE
     Indication: ANAESTHESIA
     Dosage: 40 MG, IN TOTAL
     Route: 042
     Dates: start: 20180607, end: 20180607
  4. TOPALGIC 100 MG/2 ML, SOLUTION INJECTABLE EN AMPOULE [Suspect]
     Active Substance: TRAMADOL HYDROCHLORIDE
     Indication: ANALGESIC THERAPY
     Dosage: 1 DF, (6 HOUR)
     Route: 042
     Dates: start: 20180607, end: 20180608
  5. PARACETAMOL [Suspect]
     Active Substance: ACETAMINOPHEN
     Indication: ANALGESIC THERAPY
     Dosage: 1 G, IN TOTAL
     Route: 042
     Dates: start: 20180607, end: 20180607
  6. PROPOFOL. [Suspect]
     Active Substance: PROPOFOL
     Indication: ANAESTHESIA
     Dosage: 300 MG, IN TOTAL
     Route: 042
     Dates: start: 20180607, end: 20180607
  7. NEFOPAM MYLAN 20 MG/2 ML, SOLUTION INJECTABLE [Suspect]
     Active Substance: NEFOPAM HYDROCHLORIDE
     Indication: ANALGESIC THERAPY
     Dosage: 1 DF, (6 HOUR)
     Route: 042
     Dates: start: 20180607, end: 20180608
  8. MIDAZOLAM [Suspect]
     Active Substance: MIDAZOLAM HYDROCHLORIDE
     Indication: ANAESTHESIA
     Dosage: 2 MG, IN TOTAL
     Route: 042
     Dates: start: 20180607, end: 20180607
  9. LOVENOX [Suspect]
     Active Substance: ENOXAPARIN SODIUM
     Indication: THROMBOSIS PROPHYLAXIS
     Dosage: 4000 IU, DAILY
     Route: 058
     Dates: start: 20180607, end: 20180607
  10. PARACETAMOL KABI [Suspect]
     Active Substance: ACETAMINOPHEN
     Indication: ANALGESIC THERAPY
     Dosage: 1 DF, (6 HOUR)
     Route: 042
     Dates: start: 20180607, end: 20180608
  11. PROFENID 100 MG, POUDRE POUR SOLUTION INJECTABLE (I.V.) EN FLACON [Suspect]
     Active Substance: KETOPROFEN
     Indication: ANALGESIC THERAPY
     Dosage: 100 MG, DAILY
     Route: 042
     Dates: start: 20180607, end: 20180607
  12. SUFENTANIL [Suspect]
     Active Substance: SUFENTANIL
     Indication: ANALGESIC THERAPY
     Dosage: 20 ?G, IN TOTAL
     Route: 042
     Dates: start: 20180607, end: 20180607
  13. DEXAMETHASONE. [Suspect]
     Active Substance: DEXAMETHASONE
     Indication: ANALGESIC THERAPY
     Dosage: 8 MG, IN TOTAL
     Route: 042
     Dates: start: 20180607, end: 20180607
  14. DROLEPTAN [Suspect]
     Active Substance: DROPERIDOL
     Indication: PROPHYLAXIS OF NAUSEA AND VOMITING
     Dosage: 1.25 MG, IN TOTAL
     Route: 042
     Dates: start: 20180607, end: 20180607
  15. KETAMINE [Suspect]
     Active Substance: KETAMINE
     Indication: ANALGESIC THERAPY
     Dosage: 30 MG, IN TOTAL
     Route: 042
     Dates: start: 20180607, end: 20180607
  16. ACUPAN [Suspect]
     Active Substance: NEFOPAM HYDROCHLORIDE
     Indication: ANALGESIC THERAPY
     Dosage: 20 MG, IN TOTAL
     Route: 042
     Dates: start: 20180607, end: 20180607

REACTIONS (1)
  - Haemolytic anaemia [Recovered/Resolved]

NARRATIVE: CASE EVENT DATE: 20180614
